FAERS Safety Report 9162612 (Version 2)
Quarter: 2013Q1

REPORT INFORMATION
  Report Type: Spontaneous
  Country: CA (occurrence: None)
  Receive Date: 20130225
  Receipt Date: 20130315
  Transmission Date: 20140127
  Serious: No
  Sender: FDA-Public Use
  Company Number: ACO_34355_2013

PATIENT
  Age: 62 Year
  Sex: Female

DRUGS (1)
  1. FAMPYRA [Suspect]
     Indication: MULTIPLE SCLEROSIS
     Dates: start: 20130116, end: 20130118

REACTIONS (2)
  - Convulsion [None]
  - Epilepsy [None]
